FAERS Safety Report 24430131 (Version 2)
Quarter: 2024Q4

REPORT INFORMATION
  Report Type: Spontaneous
  Country: US (occurrence: US)
  Receive Date: 20241013
  Receipt Date: 20241114
  Transmission Date: 20250114
  Serious: No
  Sender: SANOFI AVENTIS
  Company Number: US-SA-2024SA284025

PATIENT
  Age: 62 Year
  Sex: Male
  Weight: 97.52 kg

DRUGS (1)
  1. DUPIXENT [Suspect]
     Active Substance: DUPILUMAB
     Indication: Nasal polyps
     Dosage: 300 MG, QOW
     Route: 058
     Dates: end: 202407

REACTIONS (4)
  - Meniscus injury [Not Recovered/Not Resolved]
  - Arthralgia [Unknown]
  - Nasal polyps [Recovered/Resolved]
  - Condition aggravated [Recovered/Resolved]

NARRATIVE: CASE EVENT DATE: 20240101
